FAERS Safety Report 9543318 (Version 2)
Quarter: 2013Q3

REPORT INFORMATION
  Report Type: Report from Study
  Country: JP (occurrence: JP)
  Receive Date: 20130923
  Receipt Date: 20130923
  Transmission Date: 20140515
  Serious: Yes (Other)
  Sender: FDA-Public Use
  Company Number: JP-009507513-2012SP008535

PATIENT
  Sex: Male
  Weight: 3 kg

DRUGS (4)
  1. DIAZOXIDE [Suspect]
     Indication: HYPOGLYCAEMIA
     Dosage: 8.3 MG, TID
     Route: 048
     Dates: start: 20110223, end: 20110228
  2. DIAZOXIDE [Suspect]
     Dosage: 5.7 MG, TID
     Route: 048
     Dates: start: 20110228, end: 20110301
  3. DIAZOXIDE [Suspect]
     Dosage: 3.7 MG, TID
     Route: 048
     Dates: start: 20110301, end: 20110302
  4. DIAZOXIDE [Suspect]
     Dosage: 1.7 MG, TID
     Route: 048
     Dates: start: 20110302, end: 20110303

REACTIONS (1)
  - Periventricular leukomalacia [Recovered/Resolved with Sequelae]
